FAERS Safety Report 13625279 (Version 2)
Quarter: 2017Q2

REPORT INFORMATION
  Report Type: Spontaneous
  Country: JP (occurrence: JP)
  Receive Date: 20170608
  Receipt Date: 20170629
  Transmission Date: 20170830
  Serious: Yes (Hospitalization)
  Sender: FDA-Public Use
  Company Number: JP-FERRINGPH-2017FE02680

PATIENT

DRUGS (4)
  1. GONAX [Suspect]
     Active Substance: DEGARELIX
     Dosage: UNK
     Route: 065
     Dates: start: 20170609
  2. URIEF [Concomitant]
     Active Substance: SILODOSIN
     Dosage: UNK
     Dates: start: 20170512
  3. GONAX [Suspect]
     Active Substance: DEGARELIX
     Indication: PROSTATE CANCER METASTATIC
     Dosage: 240 MG, ONCE/SINGLE
     Route: 058
     Dates: start: 20170512
  4. BICALUTAMIDE. [Concomitant]
     Active Substance: BICALUTAMIDE
     Dosage: UNK
     Dates: start: 20170512

REACTIONS (2)
  - Prostatitis [Unknown]
  - Urinary retention [Recovered/Resolved]

NARRATIVE: CASE EVENT DATE: 20170529
